FAERS Safety Report 14768978 (Version 1)
Quarter: 2018Q2

REPORT INFORMATION
  Report Type: Spontaneous
  Country: US (occurrence: US)
  Receive Date: 20180410
  Receipt Date: 20180410
  Transmission Date: 20180711
  Serious: Yes (Hospitalization, Disabling, Other)
  Sender: FDA-Public Use
  Company Number: None

PATIENT
  Age: 54 Year
  Sex: Male
  Weight: 90.26 kg

DRUGS (10)
  1. PHENYTOIN SODIUM. [Concomitant]
     Active Substance: PHENYTOIN SODIUM
  2. LISINOPRIL. [Concomitant]
     Active Substance: LISINOPRIL
  3. METHOCARBAMOL. [Concomitant]
     Active Substance: METHOCARBAMOL
  4. HYDROCHLOROTHIAZIDE. [Concomitant]
     Active Substance: HYDROCHLOROTHIAZIDE
  5. ULTRAM [Suspect]
     Active Substance: TRAMADOL HYDROCHLORIDE
     Indication: PAIN
     Dosage: ?          QUANTITY:4 DF DOSAGE FORM;?
     Route: 048
     Dates: start: 201504, end: 20160927
  6. METFORMIN [Concomitant]
     Active Substance: METFORMIN HYDROCHLORIDE
  7. LEVETIRACETAM. [Concomitant]
     Active Substance: LEVETIRACETAM
  8. LORATADINE. [Concomitant]
     Active Substance: LORATADINE
  9. SIMVASTATIN. [Concomitant]
     Active Substance: SIMVASTATIN
  10. NIGHT PSYCH MEDS [Concomitant]

REACTIONS (13)
  - Odynophagia [None]
  - Sleep disorder [None]
  - Throat irritation [None]
  - Oropharyngeal pain [None]
  - Renal pain [None]
  - Wrong schedule [None]
  - Seizure [None]
  - Flank pain [None]
  - Refusal of treatment by patient [None]
  - Wrong technique in product usage process [None]
  - Abdominal discomfort [None]
  - Weight decreased [None]
  - Back pain [None]

NARRATIVE: CASE EVENT DATE: 201604
